FAERS Safety Report 8820835 (Version 3)
Quarter: 2012Q4

REPORT INFORMATION
  Report Type: 
  Country: SE (occurrence: SE)
  Receive Date: 20121002
  Receipt Date: 20121113
  Transmission Date: 20130627
  Serious: Yes (Hospitalization)
  Sender: FDA-Public Use
  Company Number: SE-ELI_LILLY_AND_COMPANY-SE201209006091

PATIENT
  Age: 79 Year
  Sex: Male

DRUGS (4)
  1. GEMZAR [Suspect]
     Indication: PANCREATIC CARCINOMA
  2. OMEPRAZOL [Concomitant]
  3. PREDNISOLON [Concomitant]
  4. CREON [Concomitant]

REACTIONS (6)
  - Back pain [Recovering/Resolving]
  - Blood creatinine increased [Recovering/Resolving]
  - Infection [Recovering/Resolving]
  - Chills [Recovering/Resolving]
  - Oedema [Recovering/Resolving]
  - Vomiting [Recovering/Resolving]
